FAERS Safety Report 4822757-8 (Version None)
Quarter: 2005Q4

REPORT INFORMATION
  Report Type: 
  Country: None (occurrence: None)
  Receive Date: 20051107
  Receipt Date: 20051107
  Transmission Date: 20060501
  Serious: Yes (Hospitalization)
  Sender: FDA-Public Use
  Company Number: None

PATIENT
  Sex: Male
  Weight: 63.9572 kg

DRUGS (7)
  1. TERAZOSIN     2 MG [Suspect]
     Indication: BENIGN PROSTATIC HYPERPLASIA
     Dosage: 2 MG   QHS   PO
     Route: 048
     Dates: start: 20001011, end: 20050729
  2. ASPIRIN [Concomitant]
  3. FERROUS SULFATE TAB [Concomitant]
  4. LACTULOSE [Concomitant]
  5. OLANZAPINE [Concomitant]
  6. TEMAZEPAM [Concomitant]
  7. TRAZODONE HCL [Concomitant]

REACTIONS (2)
  - BRADYCARDIA [None]
  - HYPOTENSION [None]
